FAERS Safety Report 11219655 (Version 1)
Quarter: 2015Q2

REPORT INFORMATION
  Report Type: Spontaneous
  Country: US (occurrence: US)
  Receive Date: 20150625
  Receipt Date: 20150625
  Transmission Date: 20150821
  Serious: Yes (Death, Other)
  Sender: FDA-Public Use
  Company Number: US-INCYTE CORPORATION-2015IN002951

PATIENT
  Age: 76 Year
  Sex: Male

DRUGS (1)
  1. JAKAFI [Suspect]
     Active Substance: RUXOLITINIB
     Indication: MYELOFIBROSIS
     Dosage: 15 MG TABLET, ONE AND A HALF TABLET, QD
     Route: 048
     Dates: start: 20110926

REACTIONS (5)
  - Rhinorrhoea [Unknown]
  - Death [Fatal]
  - Pulmonary oedema [Unknown]
  - Wrong technique in drug usage process [Unknown]
  - Pyrexia [Unknown]

NARRATIVE: CASE EVENT DATE: 2015
